FAERS Safety Report 8874207 (Version 4)
Quarter: 2013Q2

REPORT INFORMATION
  Report Type: Report from Study
  Country: US (occurrence: US)
  Receive Date: 20121031
  Receipt Date: 20130408
  Transmission Date: 20140414
  Serious: Yes (Death, Hospitalization, Other)
  Sender: FDA-Public Use
  Company Number: US-ACTELION-A-US2012-72856

PATIENT
  Age: 70 Year
  Sex: Male

DRUGS (13)
  1. VELETRI [Suspect]
     Indication: PULMONARY ARTERIAL HYPERTENSION
     Dosage: 60 NG/KG, PER MIN
     Route: 042
     Dates: start: 20110422
  2. TRACLEER [Concomitant]
     Indication: PULMONARY ARTERIAL HYPERTENSION
     Dosage: 125 MG, BID
     Route: 048
  3. BUDESONIDE [Concomitant]
  4. FERROUS SULFATE [Concomitant]
  5. FOLIC ACID [Concomitant]
  6. FUROSEMIDE [Concomitant]
  7. PANTOPRAZOLE [Concomitant]
  8. CALCIUM CARBONATE [Concomitant]
  9. VITAMIN D [Concomitant]
  10. METOLAZONE [Concomitant]
  11. MULTIVITAMINS [Concomitant]
  12. POTASSIUM CHLORIDE [Concomitant]
  13. ASPIRIN [Concomitant]

REACTIONS (14)
  - Death [Fatal]
  - Unresponsive to stimuli [Not Recovered/Not Resolved]
  - Renal failure chronic [Not Recovered/Not Resolved]
  - Hypothermia [Not Recovered/Not Resolved]
  - Pulmonary oedema [Not Recovered/Not Resolved]
  - Respiratory distress [Unknown]
  - Lower respiratory tract infection [Unknown]
  - Weight bearing difficulty [Unknown]
  - Device related infection [Unknown]
  - Malaise [Unknown]
  - Asthenia [Unknown]
  - Fluid retention [Unknown]
  - Condition aggravated [Unknown]
  - Anaemia [Unknown]
